FAERS Safety Report 11634433 (Version 2)
Quarter: 2015Q4

REPORT INFORMATION
  Report Type: Spontaneous
  Country: US (occurrence: US)
  Receive Date: 20151015
  Receipt Date: 20151119
  Transmission Date: 20160304
  Serious: Yes (Other)
  Sender: FDA-Public Use
  Company Number: US-ENDO PHARMACEUTICALS INC.-2015-003316

PATIENT
  Age: 60 Year
  Sex: Female
  Weight: 90.8 kg

DRUGS (4)
  1. ECONAZOLE NITRATE. [Concomitant]
     Active Substance: ECONAZOLE NITRATE
     Indication: SKIN IRRITATION
     Route: 065
     Dates: start: 201504
  2. NYSTATIN CREAM [Suspect]
     Active Substance: NYSTATIN
     Indication: SKIN IRRITATION
  3. ECONAZOLE NITRATE. [Concomitant]
     Active Substance: ECONAZOLE NITRATE
     Indication: FUNGAL INFECTION
  4. NYSTATIN CREAM [Suspect]
     Active Substance: NYSTATIN
     Indication: FUNGAL INFECTION
     Route: 061

REACTIONS (6)
  - Weight fluctuation [Unknown]
  - Drug ineffective [Not Recovered/Not Resolved]
  - Condition aggravated [Not Recovered/Not Resolved]
  - Walking disability [Not Recovered/Not Resolved]
  - Neuropathy peripheral [Not Recovered/Not Resolved]
  - Skin irritation [Not Recovered/Not Resolved]

NARRATIVE: CASE EVENT DATE: 20140401
